FAERS Safety Report 4496109-7 (Version None)
Quarter: 2004Q4

REPORT INFORMATION
  Report Type: 
  Country: None (occurrence: None)
  Receive Date: 20041108
  Receipt Date: 20041029
  Transmission Date: 20050328
  Serious: Yes (Disabling)
  Sender: FDA-Public Use
  Company Number: US-MERCK-0411USA00029

PATIENT
  Age: 56 Year
  Sex: Female

DRUGS (5)
  1. VIOXX [Suspect]
     Indication: PAIN MANAGEMENT
     Route: 048
     Dates: start: 20040701, end: 20040901
  2. METHOTREXATE [Concomitant]
     Route: 065
  3. PLAQUENIL [Concomitant]
     Route: 065
  4. FOLIC ACID [Concomitant]
     Route: 065
  5. CALTRATE [Concomitant]
     Route: 065

REACTIONS (1)
  - RECTAL HAEMORRHAGE [None]
